FAERS Safety Report 6656795-X (Version None)
Quarter: 2010Q1

REPORT INFORMATION
  Report Type: 
  Country: None (occurrence: None)
  Receive Date: 20100329
  Receipt Date: 20100325
  Transmission Date: 20100710
  Serious: Yes (Other)
  Sender: FDA-Public Use
  Company Number: AU-ABBOTT-10P-008-0631615-00

PATIENT
  Sex: Female

DRUGS (3)
  1. HUMIRA [Suspect]
     Indication: CROHN'S DISEASE
     Route: 058
     Dates: start: 20090701
  2. HUMIRA [Suspect]
  3. PREDNISONE TAB [Concomitant]
     Indication: DRUG USE FOR UNKNOWN INDICATION

REACTIONS (6)
  - COLECTOMY [None]
  - CUSHINGOID [None]
  - DRUG INEFFECTIVE [None]
  - ILEOSTOMY [None]
  - POSTOPERATIVE ABSCESS [None]
  - WEIGHT INCREASED [None]
